FAERS Safety Report 8848218 (Version 2)
Quarter: 2012Q4

REPORT INFORMATION
  Report Type: 
  Country: CL (occurrence: CL)
  Receive Date: 20121018
  Receipt Date: 20121130
  Transmission Date: 20130627
  Serious: Yes (Other)
  Sender: FDA-Public Use
  Company Number: CL-PFIZER INC-2012259266

PATIENT
  Age: 66 Year
  Sex: Female

DRUGS (4)
  1. CELEBRA [Suspect]
     Indication: RHEUMATOID ARTHRITIS
     Dosage: 200 mg, 1x/day or 1 Capsule 1x/day
     Route: 048
     Dates: start: 201207, end: 201210
  2. CELEBRA [Suspect]
     Dosage: 400 mg, 1x/day or 2 Capsule 1x/day
     Route: 048
     Dates: start: 201210, end: 20121012
  3. METHOTREXATE [Concomitant]
  4. PREDNISONE [Concomitant]
     Dosage: UNK
     Dates: start: 1992

REACTIONS (1)
  - Diarrhoea haemorrhagic [Recovered/Resolved]
